FAERS Safety Report 5391109-7 (Version None)
Quarter: 2007Q3

REPORT INFORMATION
  Report Type: 
  Country: None (occurrence: None)
  Receive Date: 20070719
  Receipt Date: 20070711
  Transmission Date: 20080115
  Serious: Yes (Hospitalization)
  Sender: FDA-Public Use
  Company Number: PHBS2007GR11756

PATIENT
  Age: 40 Year
  Sex: Female

DRUGS (3)
  1. EXJADE [Suspect]
     Dosage: 500 MG, TID
     Route: 048
  2. LEXOTANIL [Concomitant]
  3. OCTALAM [Concomitant]
     Dosage: EVERY 2 WEEKS

REACTIONS (3)
  - BIOPSY SKIN ABNORMAL [None]
  - CUTANEOUS VASCULITIS [None]
  - PURPURA [None]
